FAERS Safety Report 8048357-7 (Version None)
Quarter: 2012Q1

REPORT INFORMATION
  Report Type: 
  Country: None (occurrence: None)
  Receive Date: 20120117
  Receipt Date: 20120111
  Transmission Date: 20120608
  Serious: No
  Sender: FDA-Public Use
  Company Number: US-PFIZER INC-2012009903

PATIENT
  Sex: Male
  Weight: 78.01 kg

DRUGS (3)
  1. VITAMIN TAB [Concomitant]
     Dosage: UNK
  2. ATORVASTATIN CALCIUM [Suspect]
     Indication: BLOOD CHOLESTEROL INCREASED
     Dosage: 80 MG, DAILY
     Route: 048
     Dates: start: 20120106
  3. COREG [Concomitant]
     Indication: HYPERTENSION
     Dosage: 3.12 MG, DAILY
     Route: 048

REACTIONS (2)
  - MYALGIA [None]
  - ASTHENIA [None]
